FAERS Safety Report 5510570-8 (Version None)
Quarter: 2007Q4

REPORT INFORMATION
  Report Type: 
  Country: None (occurrence: None)
  Receive Date: 20071107
  Receipt Date: 20071023
  Transmission Date: 20080405
  Serious: Yes (Hospitalization)
  Sender: FDA-Public Use
  Company Number: POMP-11246

PATIENT
  Age: 2 Year
  Sex: Female
  Weight: 12.8 kg

DRUGS (11)
  1. MYOZYME [Suspect]
     Indication: GLYCOGEN STORAGE DISEASE TYPE II
     Dosage: 20 MG/KG Q2WKS IV
     Route: 042
     Dates: start: 20060601
  2. ALPHA-GLUCOSIDASE (HUMAN, RECOMBINANT, CHO CELLS, GENZYME).  MFR:  GEN [Suspect]
     Indication: GLYCOGEN STORAGE DISEASE TYPE II
     Dosage: 20 MG/KG Q2WKS IV
     Route: 042
     Dates: start: 20050622, end: 20060601
  3. ALPHA-GLUCOSIDASE (HUMAN, RECOMBINANT, CHO CELLS, GENZYME). MFR:  GENZ [Suspect]
     Indication: GLYCOGEN STORAGE DISEASE TYPE II
     Dosage: 20 MG/KG Q2WKS IV
     Route: 042
     Dates: start: 20040603, end: 20050607
  4. PREVACID [Concomitant]
  5. POLY-VI-SOL [Concomitant]
  6. L-ALANINE [Concomitant]
  7. ENALAPRIL MALEATE [Concomitant]
  8. ALBUTEROL [Concomitant]
  9. ATROVENT [Concomitant]
  10. GENTAMICIN [Concomitant]
  11. DIGOXIN [Concomitant]

REACTIONS (8)
  - ATELECTASIS [None]
  - BRADYCARDIA [None]
  - CONJUNCTIVITIS [None]
  - DECUBITUS ULCER [None]
  - DISEASE RECURRENCE [None]
  - HYPOXIA [None]
  - PNEUMONIA [None]
  - TRACHEITIS [None]
